FAERS Safety Report 4323037-X (Version None)
Quarter: 2004Q1

REPORT INFORMATION
  Report Type: 
  Country: None (occurrence: None)
  Receive Date: 20040325
  Receipt Date: 20040316
  Transmission Date: 20041129
  Serious: Yes (Other)
  Sender: FDA-Public Use
  Company Number: JP-BRISTOL-MYERS SQUIBB COMPANY-12537262

PATIENT

DRUGS (2)
  1. PARAPLATIN [Suspect]
     Indication: NEUROBLASTOMA
  2. VEPESID [Suspect]
     Indication: NEUROBLASTOMA

REACTIONS (2)
  - BODY HEIGHT BELOW NORMAL [None]
  - HYPOTHYROIDISM [None]
